FAERS Safety Report 6245924-8 (Version None)
Quarter: 2009Q2

REPORT INFORMATION
  Report Type: 
  Country: None (occurrence: None)
  Receive Date: 20090626
  Receipt Date: 20080718
  Transmission Date: 20091009
  Serious: Yes (Hospitalization)
  Sender: FDA-Public Use
  Company Number: A0738651A

PATIENT
  Age: 72 Year
  Sex: Female

DRUGS (3)
  1. IMITREX [Suspect]
     Indication: MIGRAINE
     Dosage: 5MG VARIABLE DOSE
     Route: 048
     Dates: start: 20000101, end: 20030101
  2. ZOMIG [Suspect]
     Indication: MIGRAINE
     Dosage: 5MG VARIABLE DOSE
     Dates: start: 20030101, end: 20060601
  3. NO CONCURRENT MEDICATION [Concomitant]

REACTIONS (1)
  - MYOCARDIAL INFARCTION [None]
